FAERS Safety Report 10453316 (Version 1)
Quarter: 2014Q3

REPORT INFORMATION
  Report Type: Spontaneous
  Country: US (occurrence: None)
  Receive Date: 20140912
  Receipt Date: 20140912
  Transmission Date: 20150326
  Serious: No
  Sender: FDA-Public Use
  Company Number: None

PATIENT
  Age: 59 Year
  Sex: Male

DRUGS (1)
  1. WELCHOL [Suspect]
     Active Substance: COLESEVELAM HYDROCHLORIDE
     Indication: BLOOD CHOLESTEROL INCREASED
     Dosage: 3 PILLS, TWICE DAILY, TAKEN BY MOUTH
     Route: 048
     Dates: start: 20110304, end: 20140304

REACTIONS (4)
  - Gastrooesophageal reflux disease [None]
  - Diverticulum [None]
  - Haemorrhoids [None]
  - Constipation [None]

NARRATIVE: CASE EVENT DATE: 20110304
